FAERS Safety Report 9118949 (Version 1)
Quarter: 2013Q1

REPORT INFORMATION
  Report Type: Spontaneous
  Country: US (occurrence: US)
  Receive Date: 20130226
  Receipt Date: 20130226
  Transmission Date: 20140127
  Serious: Yes (Other)
  Sender: FDA-Public Use
  Company Number: PHEH2013US004509

PATIENT
  Sex: Female
  Weight: 49.9 kg

DRUGS (2)
  1. VIVELLE DOT [Suspect]
     Indication: HOT FLUSH
     Dosage: 0.025 UKN, UNK
     Route: 062
     Dates: start: 20120214, end: 20121121
  2. ZOLOFT [Concomitant]
     Indication: DEPRESSION
     Dosage: UNK UKN, UNK

REACTIONS (10)
  - Thinking abnormal [Unknown]
  - Endometriosis [Unknown]
  - Chronic obstructive pulmonary disease [Unknown]
  - Dyspnoea [Unknown]
  - Gastrointestinal motility disorder [Unknown]
  - Pelvic pain [Unknown]
  - Pain [Recovering/Resolving]
  - Hepatic enzyme increased [Unknown]
  - Insomnia [Unknown]
  - Abdominal pain lower [Unknown]
